FAERS Safety Report 24722105 (Version 6)
Quarter: 2025Q1

REPORT INFORMATION
  Report Type: Spontaneous
  Country: US (occurrence: US)
  Receive Date: 20241211
  Receipt Date: 20250317
  Transmission Date: 20250408
  Serious: No
  Sender: PFIZER
  Company Number: US-PFIZER INC-202400315878

PATIENT
  Age: 7 Year
  Sex: Female

DRUGS (3)
  1. GENOTROPIN [Suspect]
     Active Substance: SOMATROPIN
     Indication: Hypopituitarism
     Dosage: 1.2 MG, DAILY (DOSE INCREASE AS OF 08/16/24)
     Route: 058
     Dates: start: 20240816
  2. GENOTROPIN [Suspect]
     Active Substance: SOMATROPIN
     Indication: Growth hormone deficiency
     Route: 058
     Dates: start: 20250211
  3. GENOTROPIN [Suspect]
     Active Substance: SOMATROPIN
     Indication: Ectopic posterior pituitary gland

REACTIONS (2)
  - Device leakage [Unknown]
  - Drug dose omission by device [Unknown]
